FAERS Safety Report 7654495-0 (Version None)
Quarter: 2011Q3

REPORT INFORMATION
  Report Type: 
  Country: None (occurrence: None)
  Receive Date: 20110803
  Receipt Date: 20110725
  Transmission Date: 20111222
  Serious: Yes (Hospitalization, Other)
  Sender: FDA-Public Use
  Company Number: US-ASTRAZENECA-2011SE43191

PATIENT
  Age: 35 Year
  Sex: Male
  Weight: 63 kg

DRUGS (8)
  1. ZOFRAN [Concomitant]
     Indication: NAUSEA
     Route: 048
  2. PHENOGRIN [Concomitant]
     Indication: NAUSEA
  3. LANTUS [Concomitant]
     Indication: DIABETES MELLITUS
     Route: 048
  4. VALIUM [Concomitant]
     Indication: NERVOUSNESS
  5. ZOLODID [Concomitant]
     Indication: PAIN
  6. INSULIN [Concomitant]
     Indication: DIABETES MELLITUS
     Route: 048
  7. CONFIZENE [Concomitant]
     Indication: NAUSEA
  8. NEXIUM [Suspect]
     Route: 048

REACTIONS (6)
  - PANCREATITIS [None]
  - IMPAIRED GASTRIC EMPTYING [None]
  - EATING DISORDER [None]
  - WEIGHT DECREASED [None]
  - NAUSEA [None]
  - VOMITING [None]
